FAERS Safety Report 8583639-1 (Version None)
Quarter: 2012Q3

REPORT INFORMATION
  Report Type: 
  Country: None (occurrence: None)
  Receive Date: 20120809
  Receipt Date: 20120123
  Transmission Date: 20120928
  Serious: Yes (Other)
  Sender: FDA-Public Use
  Company Number: JP-009507513-2011SP041748

PATIENT

DRUGS (14)
  1. REBETOL [Suspect]
     Dosage: 200 MG, QD
     Route: 048
     Dates: start: 20100804, end: 20110518
  2. ADALAT CC [Concomitant]
     Route: 048
     Dates: start: 20080123
  3. REBETOL [Suspect]
     Dosage: 200 MG, BID
     Route: 048
     Dates: start: 20100721, end: 20100803
  4. INTERFERON BETA NOS [Suspect]
     Dosage: 6 MILLION IU, TIW
     Route: 041
     Dates: start: 20100721, end: 20110518
  5. INTERFERON BETA NOS [Suspect]
     Indication: HEPATITIS C
     Route: 041
     Dates: start: 20100621, end: 20100705
  6. INTERFERON BETA NOS [Suspect]
     Dosage: 6 MILLION IU, QD
     Route: 041
     Dates: start: 20100706, end: 20100719
  7. INTERFERON BETA NOS [Suspect]
     Route: 041
     Dates: start: 20100706, end: 20100719
  8. INTERFERON BETA NOS [Suspect]
     Indication: HEPATITIS C
     Dosage: 3 MILLION IU, BID
     Route: 041
     Dates: start: 20100621, end: 20100705
  9. URSO 250 [Concomitant]
     Indication: HEPATITIS C
     Dosage: 600 MG, UNK
     Route: 048
     Dates: start: 20060906
  10. URSO 250 [Concomitant]
  11. ADALAT CC [Concomitant]
     Indication: HYPERTENSION
     Dosage: 40 MG, UNK
     Route: 048
     Dates: start: 20080123
  12. DEPAS [Concomitant]
     Indication: INSOMNIA
     Dosage: 0.5 MG, UNK
     Route: 048
     Dates: start: 20080910
  13. REBETOL [Suspect]
     Dosage: 200MG400MG IN EVENING IN MORNING
     Route: 048
     Dates: start: 20100621, end: 20100720
  14. INTERFERON BETA NOS [Suspect]
     Route: 041
     Dates: start: 20100721, end: 20110518

REACTIONS (8)
  - NEUTROPHIL COUNT DECREASED [None]
  - HAEMOGLOBIN DECREASED [None]
  - DEPRESSION [None]
  - HYPERKALAEMIA [None]
  - PROTEINURIA [None]
  - RED BLOOD CELL COUNT DECREASED [None]
  - HAEMATOCRIT DECREASED [None]
  - PYREXIA [None]
